FAERS Safety Report 5386909-3 (Version None)
Quarter: 2007Q3

REPORT INFORMATION
  Report Type: 
  Country: None (occurrence: None)
  Receive Date: 20070713
  Receipt Date: 20070702
  Transmission Date: 20080115
  Serious: Yes (Other)
  Sender: FDA-Public Use
  Company Number: TR-PFIZER INC-2007048092

PATIENT
  Sex: Female
  Weight: 148 kg

DRUGS (4)
  1. PREGABALIN [Suspect]
     Indication: DIABETIC NEUROPATHY
     Route: 048
     Dates: start: 20070601, end: 20070604
  2. ACETYLCYSTEINE [Concomitant]
     Route: 048
     Dates: start: 20070601, end: 20070604
  3. ATORVASTATIN [Concomitant]
     Route: 048
     Dates: start: 20070529, end: 20070605
  4. RAMIPRIL [Concomitant]
     Route: 048
     Dates: start: 20070529, end: 20070605

REACTIONS (1)
  - RASH [None]
